FAERS Safety Report 7930620-9 (Version None)
Quarter: 2011Q4

REPORT INFORMATION
  Report Type: 
  Country: None (occurrence: None)
  Receive Date: 20111121
  Receipt Date: 20111118
  Transmission Date: 20120403
  Serious: Yes (Other)
  Sender: FDA-Public Use
  Company Number: US-PFIZER INC-2011283334

PATIENT
  Sex: Male
  Weight: 90.703 kg

DRUGS (6)
  1. KLONOPIN [Concomitant]
     Indication: ANXIETY
  2. LOPRESSOR [Concomitant]
     Indication: CARDIAC DISORDER
     Dosage: 25 MG, 2X/DAY
  3. NEURONTIN [Suspect]
     Dosage: UNK
  4. KLONOPIN [Concomitant]
     Indication: SLEEP DISORDER
     Dosage: 2.5 MG, DAILY
  5. LORTAB [Concomitant]
     Indication: BLOOD CHOLESTEROL INCREASED
     Dosage: 600 MG, 2X/DAY
  6. ACETYLSALICYLIC ACID [Concomitant]
     Indication: ANTICOAGULANT THERAPY
     Dosage: 81 MG,DAILY

REACTIONS (1)
  - TENDON RUPTURE [None]
